FAERS Safety Report 4392142-4 (Version None)
Quarter: 2004Q3

REPORT INFORMATION
  Report Type: 
  Country: None (occurrence: None)
  Receive Date: 20040702
  Receipt Date: 20040206
  Transmission Date: 20050211
  Serious: Yes (Other)
  Sender: FDA-Public Use
  Company Number: 2004UW02138

PATIENT
  Age: 57 Year
  Sex: Female
  Weight: 114.3065 kg

DRUGS (10)
  1. CRESTOR [Suspect]
     Indication: BLOOD CHOLESTEROL INCREASED
     Dosage: 10 MG PO
     Route: 048
  2. GLUCOPHAGE [Concomitant]
  3. FOSAMAX [Concomitant]
  4. DIOVAN [Concomitant]
  5. PREVACID [Concomitant]
  6. PLAVIX [Concomitant]
  7. NORVASC [Concomitant]
  8. ROBAXIN [Concomitant]
  9. PULMICORT [Concomitant]
  10. RHINOCORT [Concomitant]

REACTIONS (4)
  - ABDOMINAL PAIN UPPER [None]
  - DIARRHOEA [None]
  - FLATULENCE [None]
  - NAUSEA [None]
